FAERS Safety Report 23846908 (Version 2)
Quarter: 2025Q1

REPORT INFORMATION
  Report Type: Spontaneous
  Country: CA (occurrence: CA)
  Receive Date: 20240513
  Receipt Date: 20250303
  Transmission Date: 20250409
  Serious: Yes (Life-Threatening)
  Sender: BIOGEN
  Company Number: CA-BIOGEN-2024BI01263923

PATIENT
  Age: 47 Year
  Sex: Female

DRUGS (2)
  1. TECFIDERA [Suspect]
     Active Substance: DIMETHYL FUMARATE
     Indication: Multiple sclerosis
     Dosage: STARTER DOSE: 120 MG (AM) FOR 14 DAYS
     Route: 050
     Dates: start: 20200115
  2. TECFIDERA [Suspect]
     Active Substance: DIMETHYL FUMARATE
     Dosage: MAINTENANCE DOSE: 240 MG (PM) FOR 14 DAYS
     Route: 050
     Dates: start: 20200213

REACTIONS (1)
  - Invasive ductal breast carcinoma [Unknown]

NARRATIVE: CASE EVENT DATE: 20240404
